FAERS Safety Report 15034242 (Version 1)
Quarter: 2018Q2

REPORT INFORMATION
  Report Type: Other
  Country: US (occurrence: US)
  Receive Date: 20180620
  Receipt Date: 20180620
  Transmission Date: 20180711
  Serious: No
  Sender: FDA-Public Use
  Company Number: US-GLENMARK PHARMACEUTICALS-2018GMK033904

PATIENT

DRUGS (1)
  1. ATOMOXETINE HCL CAPSULES [Suspect]
     Active Substance: ATOMOXETINE HYDROCHLORIDE
     Indication: ATTENTION DEFICIT/HYPERACTIVITY DISORDER
     Dosage: UNK
     Route: 065
     Dates: start: 201707, end: 201709

REACTIONS (2)
  - Product substitution issue [Unknown]
  - Crying [Recovered/Resolved]
